FAERS Safety Report 19774961 (Version 1)
Quarter: 2021Q3

REPORT INFORMATION
  Report Type: Spontaneous
  Country: US (occurrence: US)
  Receive Date: 20210901
  Receipt Date: 20210901
  Transmission Date: 20211014
  Serious: Yes (Other)
  Sender: FDA-Public Use
  Company Number: US-PFIZER INC-202101082815

PATIENT

DRUGS (1)
  1. PREMARIN [Suspect]
     Active Substance: ESTROGENS, CONJUGATED
     Dosage: UNK, 3X/DAY

REACTIONS (3)
  - Breast cancer [Unknown]
  - Depression [Unknown]
  - Off label use [Unknown]

NARRATIVE: CASE EVENT DATE: 202007
